FAERS Safety Report 5083853-6 (Version None)
Quarter: 2006Q3

REPORT INFORMATION
  Report Type: 
  Country: None (occurrence: None)
  Receive Date: 20060818
  Receipt Date: 20060720
  Transmission Date: 20061208
  Serious: Yes (Death, Life-Threatening, Hospitalization, Disabling, Other)
  Sender: FDA-Public Use
  Company Number: MX-MERCK-0607MEX00016

PATIENT
  Age: 84 Year
  Sex: Female

DRUGS (5)
  1. INVANZ [Suspect]
     Indication: INFECTION
     Route: 030
     Dates: start: 20060717, end: 20060719
  2. PRINZIDE [Suspect]
     Indication: HYPERTENSION
     Route: 048
  3. DEFLAZACORT [Concomitant]
     Route: 048
     Dates: start: 20060401
  4. ISOSORBIDE [Concomitant]
     Route: 048
     Dates: start: 20000101
  5. MICARDIS [Concomitant]
     Indication: HYPERTENSION
     Route: 048
     Dates: start: 20040101

REACTIONS (7)
  - COMA [None]
  - COORDINATION ABNORMAL [None]
  - DEATH [None]
  - DEHYDRATION [None]
  - DELIRIUM [None]
  - IMMOBILE [None]
  - RESPIRATORY FAILURE [None]
